FAERS Safety Report 5253434-X (Version None)
Quarter: 2007Q1

REPORT INFORMATION
  Report Type: 
  Country: None (occurrence: None)
  Receive Date: 20070301
  Receipt Date: 20070223
  Transmission Date: 20070707
  Serious: Yes (Hospitalization)
  Sender: FDA-Public Use
  Company Number: FR-SHR-FR-2006-036533

PATIENT
  Age: 46 Year
  Sex: Female
  Weight: 54 kg

DRUGS (2)
  1. MIRENA [Suspect]
     Indication: CONTRACEPTION
     Dosage: 20 A?G/DAY, CONT
     Route: 058
     Dates: start: 20000501, end: 20070101
  2. LEVOTHYROXINE SODIUM [Concomitant]
     Dosage: 1 TAB(S), 1X/DAY
     Route: 048

REACTIONS (1)
  - BREAST CANCER [None]
